FAERS Safety Report 7654256-2 (Version None)
Quarter: 2011Q3

REPORT INFORMATION
  Report Type: 
  Country: None (occurrence: None)
  Receive Date: 20110803
  Receipt Date: 20110725
  Transmission Date: 20111222
  Serious: Yes (Hospitalization, Other)
  Sender: FDA-Public Use
  Company Number: US-BAYER-2011-035525

PATIENT
  Age: 40 Year
  Sex: Female
  Weight: 68.934 kg

DRUGS (7)
  1. YASMIN [Suspect]
     Indication: CONTRACEPTION
     Dosage: UNK
     Route: 048
     Dates: start: 20051201, end: 20081202
  2. PREMPHASE (PREMARIN;CYCRIN 14/14) [Concomitant]
     Indication: MENOPAUSE
     Dosage: UNK
     Dates: start: 20100201
  3. ALPRAZOLAM [Concomitant]
     Dosage: UNK
     Dates: start: 20100101
  4. YAZ [Suspect]
     Indication: CONTRACEPTION
     Dosage: UNK
     Route: 048
     Dates: start: 20081202, end: 20090309
  5. ALPRAZOLAM [Concomitant]
     Indication: ANXIETY
     Dosage: UNK
     Dates: start: 20070901
  6. ALPRAZOLAM [Concomitant]
     Dosage: UNK
     Dates: start: 20081001, end: 20090201
  7. DROSPIRENONE AND ETHINYL ESTRADIOL [Suspect]
     Indication: CONTRACEPTION
     Dosage: UNK
     Route: 048
     Dates: start: 20090309, end: 20100310

REACTIONS (4)
  - GALLBLADDER DISORDER [None]
  - CHOLELITHIASIS [None]
  - CHOLECYSTITIS CHRONIC [None]
  - PAIN [None]
